FAERS Safety Report 7591589-2 (Version None)
Quarter: 2011Q3

REPORT INFORMATION
  Report Type: 
  Country: None (occurrence: None)
  Receive Date: 20110706
  Receipt Date: 20090209
  Transmission Date: 20111222
  Serious: Yes (Other)
  Sender: FDA-Public Use
  Company Number: US-BAYER-200912643NA

PATIENT
  Age: 47 Year
  Sex: Male
  Weight: 69.388 kg

DRUGS (12)
  1. TRASYLOL [Suspect]
     Indication: CARDIAC PACEMAKER INSERTION
     Dosage: 50ML/HR INFUSION
     Route: 042
     Dates: start: 20050804, end: 20050804
  2. LIPITOR [Concomitant]
     Dosage: 20 MG, QD
     Route: 048
     Dates: start: 20040101
  3. HEPARIN [Concomitant]
     Dosage: 30000 U, ONCE
     Route: 042
     Dates: start: 20050804, end: 20050804
  4. FENTANYL [Concomitant]
     Dosage: UNK
     Route: 042
     Dates: start: 20050804, end: 20050804
  5. TRASYLOL [Suspect]
     Indication: STERNOTOMY
     Dosage: 200ML LOADING DOSE
     Route: 042
     Dates: start: 20050804, end: 20050804
  6. ACETYLSALICYLIC ACID SRT [Concomitant]
     Dosage: 81 MG, QD
     Route: 048
     Dates: start: 20040101
  7. LASIX [Concomitant]
     Dosage: UNK
     Route: 042
     Dates: start: 20050804, end: 20050804
  8. TRASYLOL [Suspect]
     Indication: CORONARY ARTERY BYPASS
     Dosage: 200 ML, ONCE, LOADING DOSE
     Route: 042
     Dates: start: 20050804, end: 20050804
  9. ALTACE [Concomitant]
     Dosage: 2.5 MG, QD
     Route: 048
     Dates: start: 20050101, end: 20050101
  10. LEVOPHED [Concomitant]
     Dosage: UNK
     Route: 042
     Dates: start: 20050804, end: 20050804
  11. PRILOSEC [Concomitant]
     Dosage: 20 MG, QD
     Route: 048
     Dates: start: 19980101
  12. PROTAMINE SULFATE [Concomitant]
     Dosage: UNK
     Route: 042
     Dates: start: 20050804, end: 20050804

REACTIONS (9)
  - EMBOLIC STROKE [None]
  - GENERAL PHYSICAL HEALTH DETERIORATION [None]
  - ANXIETY [None]
  - UNEVALUABLE EVENT [None]
  - DEPRESSION [None]
  - INJURY [None]
  - PAIN [None]
  - ANHEDONIA [None]
  - FEAR [None]
